FAERS Safety Report 8473850-2 (Version None)
Quarter: 2012Q2

REPORT INFORMATION
  Report Type: 
  Country: None (occurrence: None)
  Receive Date: 20120628
  Receipt Date: 20111221
  Transmission Date: 20120825
  Serious: Yes (Death)
  Sender: FDA-Public Use
  Company Number: US-MYLANLABS-2011S1026158

PATIENT
  Sex: Male

DRUGS (7)
  1. RISPERDAL [Concomitant]
     Route: 030
  2. CYMBALTA [Concomitant]
     Route: 048
  3. ASPIRIN [Concomitant]
     Route: 048
  4. CLOZAPINE [Suspect]
     Route: 048
  5. ACIPHEX [Concomitant]
     Route: 048
  6. CLOZAPINE [Suspect]
     Route: 048
  7. REMERON [Concomitant]
     Route: 048

REACTIONS (1)
  - MYOCARDIAL INFARCTION [None]
